FAERS Safety Report 9932997 (Version 1)
Quarter: 2014Q1

REPORT INFORMATION
  Report Type: Report from Study
  Country: US (occurrence: US)
  Receive Date: 20140228
  Receipt Date: 20140228
  Transmission Date: 20141002
  Serious: No
  Sender: FDA-Public Use
  Company Number: US-ABBVIE-13P-163-1077473-00

PATIENT
  Sex: Male
  Weight: 84.9 kg

DRUGS (2)
  1. ANDROGEL [Suspect]
     Indication: BLOOD TESTOSTERONE DECREASED
     Dosage: 5GM PACKET DAILY
     Dates: start: 201201, end: 201204
  2. ANDROGEL [Suspect]
     Dosage: 5GM PACKET DAILY
     Dates: start: 201204

REACTIONS (1)
  - Blood testosterone decreased [Not Recovered/Not Resolved]
